FAERS Safety Report 25518496 (Version 2)
Quarter: 2025Q3

REPORT INFORMATION
  Report Type: Spontaneous
  Country: US (occurrence: US)
  Receive Date: 20250704
  Receipt Date: 20250807
  Transmission Date: 20251020
  Serious: No
  Sender: Day One Biopharmaceuticals
  Company Number: US-Day One Biopharmaceuticals Inc.-2025US000938

PATIENT

DRUGS (2)
  1. OJEMDA [Suspect]
     Active Substance: TOVORAFENIB
     Indication: Astrocytoma
     Route: 065
     Dates: start: 202411
  2. OJEMDA [Suspect]
     Active Substance: TOVORAFENIB
     Indication: Glioma

REACTIONS (4)
  - Melanocytic naevus [Not Recovered/Not Resolved]
  - Alopecia [Not Recovered/Not Resolved]
  - Amenorrhoea [Not Recovered/Not Resolved]
  - Disease progression [Not Recovered/Not Resolved]

NARRATIVE: CASE EVENT DATE: 20250101
